FAERS Safety Report 5472429-4 (Version None)
Quarter: 2007Q3

REPORT INFORMATION
  Report Type: 
  Country: None (occurrence: None)
  Receive Date: 20070927
  Receipt Date: 20070915
  Transmission Date: 20080115
  Serious: Yes (Hospitalization)
  Sender: FDA-Public Use
  Company Number: 2007AP001010

PATIENT
  Age: 80 Year
  Sex: Female

DRUGS (9)
  1. METFORMIN HCL [Suspect]
     Indication: DIABETES MELLITUS
     Dosage: 500 MG;QD;PO
     Route: 048
     Dates: start: 20070801
  2. RALOXIFENE HCL [Concomitant]
  3. ATORVASTATIN CALCIUM [Concomitant]
  4. ATENOLOL [Concomitant]
  5. POTASSIUM CHLORIDE [Concomitant]
  6. CALCIUM [Concomitant]
  7. ACETYLSALICYLIC ACID [Concomitant]
  8. PIOGLITAZONE HCL [Concomitant]
  9. ALLOPURINOL [Concomitant]

REACTIONS (2)
  - ANAPHYLACTIC SHOCK [None]
  - PHARMACEUTICAL PRODUCT COMPLAINT [None]
